FAERS Safety Report 14712863 (Version 1)
Quarter: 2018Q2

REPORT INFORMATION
  Report Type: Spontaneous
  Country: FR (occurrence: FR)
  Receive Date: 20180404
  Receipt Date: 20180404
  Transmission Date: 20180711
  Serious: Yes (Other)
  Sender: FDA-Public Use
  Company Number: FR-MERCK KGAA-2045071

PATIENT
  Age: 38 Year
  Sex: Female
  Weight: 77 kg

DRUGS (1)
  1. NOVOTHYROX [Suspect]
     Active Substance: LEVOTHYROXINE SODIUM
     Indication: PRODUCT USED FOR UNKNOWN INDICATION
     Dates: start: 201705

REACTIONS (33)
  - Fatigue [Recovering/Resolving]
  - Amnesia [Recovering/Resolving]
  - Thyroxine free increased [Recovering/Resolving]
  - Skin sensitisation [Recovering/Resolving]
  - Pruritus [Recovering/Resolving]
  - Nausea [Recovering/Resolving]
  - Muscular weakness [Recovering/Resolving]
  - Sensory disturbance [Recovering/Resolving]
  - Malaise [Recovering/Resolving]
  - Asthenia [Recovering/Resolving]
  - Myalgia [Recovering/Resolving]
  - Mean cell haemoglobin increased [Not Recovered/Not Resolved]
  - Insomnia [Recovering/Resolving]
  - Irritability [Recovering/Resolving]
  - Hyperacusis [Recovering/Resolving]
  - Disturbance in attention [Recovering/Resolving]
  - Libido decreased [Recovering/Resolving]
  - Dyspnoea [Recovering/Resolving]
  - Depression [Recovering/Resolving]
  - Emotional disorder [Recovering/Resolving]
  - Musculoskeletal stiffness [Recovering/Resolving]
  - Joint ankylosis [Recovering/Resolving]
  - Arthralgia [Recovering/Resolving]
  - Alopecia [Recovering/Resolving]
  - Tri-iodothyronine free increased [Recovering/Resolving]
  - Anti-thyroid antibody positive [None]
  - Gamma-glutamyltransferase decreased [None]
  - Dizziness [Recovering/Resolving]
  - Anxiety [Recovering/Resolving]
  - Red blood cell sedimentation rate increased [Recovering/Resolving]
  - Mobility decreased [Recovering/Resolving]
  - Loss of personal independence in daily activities [Recovering/Resolving]
  - Blood thyroid stimulating hormone decreased [Recovering/Resolving]

NARRATIVE: CASE EVENT DATE: 201705
